FAERS Safety Report 12115845 (Version 2)
Quarter: 2016Q1

REPORT INFORMATION
  Report Type: Spontaneous
  Country: US (occurrence: US)
  Receive Date: 20160225
  Receipt Date: 20160304
  Transmission Date: 20160526
  Serious: No
  Sender: FDA-Public Use
  Company Number: US-GLAXOSMITHKLINE-US2016GSK026902

PATIENT
  Sex: Female

DRUGS (2)
  1. LAMICTAL [Suspect]
     Active Substance: LAMOTRIGINE
     Indication: CHRONIC FATIGUE SYNDROME
     Dosage: UNK, TID
     Route: 065
  2. LAMICTAL [Suspect]
     Active Substance: LAMOTRIGINE
     Indication: BIPOLAR DISORDER
     Dosage: UNK, U
     Dates: start: 2000

REACTIONS (9)
  - Performance status decreased [Unknown]
  - Insomnia [Unknown]
  - Malaise [Unknown]
  - Product use issue [Unknown]
  - Amnesia [Unknown]
  - Herpes virus infection [Unknown]
  - Fatigue [Unknown]
  - Feeling abnormal [Unknown]
  - Intentional product use issue [Unknown]
